FAERS Safety Report 4351070-0 (Version None)
Quarter: 2004Q2

REPORT INFORMATION
  Report Type: 
  Country: None (occurrence: None)
  Receive Date: 20040427
  Receipt Date: 20040413
  Transmission Date: 20050107
  Serious: Yes (Hospitalization)
  Sender: FDA-Public Use
  Company Number: 2003AP04532

PATIENT
  Age: 63 Year
  Sex: Male

DRUGS (9)
  1. IRESSA [Suspect]
     Indication: LUNG ADENOCARCINOMA
     Dosage: 250 MG DAILY; PO
     Route: 048
     Dates: start: 20030401, end: 20030905
  2. IRESSA [Suspect]
     Indication: LUNG ADENOCARCINOMA
     Dosage: 250 MG DAILY; PO
     Route: 048
     Dates: start: 20031114, end: 20031212
  3. LENDORM [Concomitant]
  4. GASTROM [Concomitant]
  5. RESPLEN [Concomitant]
  6. DIPYRIDAMOLE [Concomitant]
  7. BIO THREE [Concomitant]
  8. CISPLATIN [Concomitant]
  9. DOCETAXEL [Concomitant]

REACTIONS (3)
  - CARCINOEMBRYONIC ANTIGEN INCREASED [None]
  - CYSTITIS HAEMORRHAGIC [None]
  - INTERSTITIAL LUNG DISEASE [None]
